FAERS Safety Report 16282995 (Version 1)
Quarter: 2019Q2

REPORT INFORMATION
  Report Type: Report from Study
  Country: FR (occurrence: FR)
  Receive Date: 20190507
  Receipt Date: 20190507
  Transmission Date: 20190711
  Serious: Yes (Death, Other)
  Sender: FDA-Public Use
  Company Number: FR-PFIZER INC-2019193827

PATIENT
  Age: 68 Year
  Sex: Female

DRUGS (1)
  1. LORLATINIB [Suspect]
     Active Substance: LORLATINIB
     Indication: ADENOCARCINOMA
     Dosage: UNK
     Dates: start: 20190206, end: 20190420

REACTIONS (3)
  - Death [Fatal]
  - Fall [Unknown]
  - Quadriplegia [Unknown]

NARRATIVE: CASE EVENT DATE: 20190427
